FAERS Safety Report 8904076 (Version 1)
Quarter: 2012Q4

REPORT INFORMATION
  Report Type: 
  Country: JP (occurrence: JP)
  Receive Date: 20121112
  Receipt Date: 20121112
  Transmission Date: 20130627
  Serious: Yes (Other)
  Sender: FDA-Public Use
  Company Number: JP-PFIZER INC-2012278926

PATIENT
  Age: 11 Year

DRUGS (1)
  1. ZITHROMAC [Suspect]
     Indication: COMMON COLD
     Route: 048

REACTIONS (1)
  - Pneumonia [Unknown]
